FAERS Safety Report 8004706-7 (Version None)
Quarter: 2011Q4

REPORT INFORMATION
  Report Type: 
  Country: None (occurrence: None)
  Receive Date: 20111223
  Receipt Date: 20111214
  Transmission Date: 20120403
  Serious: Yes (Death, Hospitalization)
  Sender: FDA-Public Use
  Company Number: MX-JNJFOC-20111207140

PATIENT
  Age: 48 Year
  Sex: Male
  Weight: 132 kg

DRUGS (3)
  1. CLONAZEPAM [Concomitant]
     Route: 065
  2. RISPERDAL CONSTA [Suspect]
     Indication: SCHIZOPHRENIA
     Route: 030
     Dates: start: 20090101, end: 20111001
  3. AMPHETAMINES [Concomitant]
     Route: 065

REACTIONS (4)
  - PSYCHOMOTOR HYPERACTIVITY [None]
  - CONDITION AGGRAVATED [None]
  - SEPTIC SHOCK [None]
  - PNEUMONIA [None]
